FAERS Safety Report 6930650-X (Version None)
Quarter: 2010Q3

REPORT INFORMATION
  Report Type: 
  Country: None (occurrence: None)
  Receive Date: 20100818
  Receipt Date: 20100422
  Transmission Date: 20110219
  Serious: No
  Sender: FDA-Public Use
  Company Number: A0857167A

PATIENT
  Age: 61 Year
  Sex: Female

DRUGS (2)
  1. COREG CR [Suspect]
     Indication: EJECTION FRACTION ABNORMAL
     Dosage: 40MG UNKNOWN
     Route: 065
  2. LISINOPRIL [Concomitant]

REACTIONS (2)
  - ADVERSE DRUG REACTION [None]
  - SENSORY DISTURBANCE [None]
